FAERS Safety Report 5253782-3 (Version None)
Quarter: 2007Q1

REPORT INFORMATION
  Report Type: 
  Country: None (occurrence: None)
  Receive Date: 20070227
  Receipt Date: 20070209
  Transmission Date: 20070707
  Serious: Yes (Death)
  Sender: FDA-Public Use
  Company Number: 15694

PATIENT
  Age: 18 Year
  Sex: Male

DRUGS (14)
  1. METHOTREXATE [Suspect]
     Indication: ACUTE LYMPHOCYTIC LEUKAEMIA
     Dates: start: 20061101, end: 20061201
  2. VINCRISTINE [Suspect]
  3. PREDNISOLONE [Suspect]
     Indication: ACUTE LYMPHOCYTIC LEUKAEMIA
     Dosage: 40 MG/M2 WEEKLY PO
     Route: 048
     Dates: start: 20061101, end: 20061201
  4. ACYCLOVIR [Concomitant]
  5. CITALOPRAM HYDROBROMIDE [Concomitant]
  6. FLUCONAZOLE [Concomitant]
  7. GABAPENTIN [Concomitant]
  8. KETOVITE [Concomitant]
  9. LEVEMIR [Concomitant]
  10. OMEPRAZOLE [Concomitant]
  11. PREDNISOLONE [Concomitant]
  12. VITAMIN K [Concomitant]
  13. ACIDOPHILUS [Concomitant]
  14. MAGASORB [Concomitant]

REACTIONS (2)
  - CARDIAC ARREST [None]
  - NEUTROPENIC SEPSIS [None]
